FAERS Safety Report 7682273-5 (Version None)
Quarter: 2011Q3

REPORT INFORMATION
  Report Type: 
  Country: None (occurrence: None)
  Receive Date: 20110805
  Receipt Date: 20110720
  Transmission Date: 20111222
  Serious: Yes (Hospitalization)
  Sender: FDA-Public Use
  Company Number: B0733988A

PATIENT
  Age: 42 Year
  Sex: Female

DRUGS (1)
  1. LAMOTRIGINE [Suspect]
     Indication: DRUG WITHDRAWAL CONVULSIONS

REACTIONS (3)
  - HYPERTONIA [None]
  - MUSCLE RIGIDITY [None]
  - GRAND MAL CONVULSION [None]
